FAERS Safety Report 24371063 (Version 3)
Quarter: 2024Q4

REPORT INFORMATION
  Report Type: Spontaneous
  Country: ES (occurrence: ES)
  Receive Date: 20240927
  Receipt Date: 20241010
  Transmission Date: 20250115
  Serious: Yes (Death, Hospitalization)
  Sender: ALNYLAM PHARMACEUTICALS
  Company Number: ES-ALNYLAM PHARMACEUTICALS, INC.-ALN-2024-005305

PATIENT

DRUGS (11)
  1. AMVUTTRA [Suspect]
     Active Substance: VUTRISIRAN
     Indication: Hereditary neuropathic amyloidosis
     Dosage: UNK
     Route: 058
     Dates: start: 20240912, end: 20240912
  2. LYRICA [Concomitant]
     Active Substance: PREGABALIN
     Indication: Paraesthesia
     Dosage: 50 MILLIGRAM, BID (BREAKFAST AND DINNER) EVERY DAY
     Route: 048
     Dates: start: 2021
  3. RENAGEL [Concomitant]
     Active Substance: SEVELAMER HYDROCHLORIDE
     Indication: Phosphorus metabolism disorder
     Dosage: 800 MILLIGRAM, LUNCH QD
     Route: 048
     Dates: start: 2020
  4. LOKELMA [Concomitant]
     Active Substance: SODIUM ZIRCONIUM CYCLOSILICATE
     Indication: Blood potassium abnormal
     Dosage: 5 GRAM, QD
     Route: 065
     Dates: start: 2020
  5. ROPINIROLE [Concomitant]
     Active Substance: ROPINIROLE
     Indication: Restless legs syndrome
     Dosage: 2 MILLIGRAM, QD
     Route: 065
     Dates: start: 2020
  6. CHOLECALCIFEROL [Concomitant]
     Active Substance: CHOLECALCIFEROL
     Indication: Unevaluable event
     Dosage: 25000 INTERNATIONAL UNIT, MONTHLY
     Route: 065
     Dates: start: 2020
  7. FEBUXOSTAT [Concomitant]
     Active Substance: FEBUXOSTAT
     Indication: Hyperuricaemia
     Dosage: 40 MILLIGRAM, MONDAY, WEDNESDAY, FRIDAY EVERY WEEK
     Route: 065
     Dates: start: 2020
  8. LEVOTHYROXINE SODIUM [Concomitant]
     Active Substance: LEVOTHYROXINE SODIUM
     Indication: Hypothyroidism
     Dosage: 125 MICROGRAM, QD (BREAKFAST)
     Route: 048
     Dates: start: 2020
  9. VYTORIN [Concomitant]
     Active Substance: EZETIMIBE\SIMVASTATIN
     Indication: Dyslipidaemia
     Dosage: 1 DOSAGE FORM, QD
     Route: 048
     Dates: start: 2020
  10. LINAGLIPTIN [Concomitant]
     Active Substance: LINAGLIPTIN
     Indication: Diabetes mellitus
     Dosage: 1 DOSAGE FORM, QD
     Route: 048
     Dates: start: 2020
  11. Lexatin [Concomitant]
     Indication: Anxiolytic therapy
     Dosage: 1 DOSAGE FORM, QD
     Route: 048
     Dates: start: 2020

REACTIONS (1)
  - Tumour perforation [Fatal]

NARRATIVE: CASE EVENT DATE: 20240921
